FAERS Safety Report 7680766-8 (Version None)
Quarter: 2011Q3

REPORT INFORMATION
  Report Type: 
  Country: None (occurrence: None)
  Receive Date: 20110812
  Receipt Date: 20110801
  Transmission Date: 20111222
  Serious: Yes (Hospitalization, Other)
  Sender: FDA-Public Use
  Company Number: US-BAYER-2011-004757

PATIENT
  Age: 29 Year
  Sex: Female
  Weight: 54.422 kg

DRUGS (4)
  1. YAZ [Suspect]
  2. ATENOLOL [Concomitant]
     Dosage: UNK
     Dates: start: 20070101
  3. YASMIN [Suspect]
  4. KLONOPIN [Concomitant]

REACTIONS (5)
  - EMOTIONAL DISTRESS [None]
  - THROMBOSIS [None]
  - PULMONARY EMBOLISM [None]
  - PAIN [None]
  - ANXIETY [None]
